FAERS Safety Report 21938199 (Version 2)
Quarter: 2023Q2

REPORT INFORMATION
  Report Type: Spontaneous
  Country: JP (occurrence: JP)
  Receive Date: 20230201
  Receipt Date: 20230626
  Transmission Date: 20230722
  Serious: Yes (Other)
  Sender: FDA-Public Use
  Company Number: JP-MSD-M2022-34722

PATIENT
  Age: 6 Decade
  Sex: Male

DRUGS (5)
  1. KEYTRUDA [Suspect]
     Active Substance: PEMBROLIZUMAB
     Indication: Oesophageal carcinoma
     Dosage: 200 MILLIGRAM, Q3W
     Route: 041
     Dates: start: 202207
  2. FLUOROURACIL [Suspect]
     Active Substance: FLUOROURACIL
     Dosage: 800 MILLIGRAM, Q3W
     Route: 051
     Dates: start: 202207, end: 202209
  3. CISPLATIN [Suspect]
     Active Substance: CISPLATIN
     Dosage: 80 MILLIGRAM, Q3W
     Route: 065
     Dates: start: 202207, end: 2022
  4. CISPLATIN [Suspect]
     Active Substance: CISPLATIN
     Dosage: UNK
     Route: 065
     Dates: start: 2022, end: 2022
  5. CISPLATIN [Suspect]
     Active Substance: CISPLATIN
     Dosage: UNK
     Route: 065
     Dates: start: 2022, end: 202209

REACTIONS (5)
  - Myelosuppression [Recovered/Resolved]
  - Neutropenia [Recovered/Resolved]
  - Malaise [Recovered/Resolved]
  - Decreased appetite [Recovered/Resolved]
  - Nausea [Recovered/Resolved]

NARRATIVE: CASE EVENT DATE: 20220801
